FAERS Safety Report 5996712-9 (Version None)
Quarter: 2008Q4

REPORT INFORMATION
  Report Type: 
  Country: None (occurrence: None)
  Receive Date: 20081212
  Receipt Date: 20081023
  Transmission Date: 20090506
  Serious: No
  Sender: FDA-Public Use
  Company Number: US-ABBOTT-08P-163-0483472-00

PATIENT
  Sex: Female

DRUGS (5)
  1. HUMIRA [Suspect]
     Indication: RHEUMATOID ARTHRITIS
     Route: 058
     Dates: start: 20081015
  2. METHOTREXATE [Concomitant]
     Indication: RHEUMATOID ARTHRITIS
     Dates: start: 20080701
  3. UNKNOWN PAIN PILL [Concomitant]
     Indication: PAIN
     Route: 048
     Dates: start: 20080701
  4. UNKNOWN STOMACH PILL [Concomitant]
     Indication: DRUG USE FOR UNKNOWN INDICATION
     Route: 048
     Dates: start: 20080701
  5. CALCIUM-SANDOZ [Concomitant]
     Indication: MINERAL SUPPLEMENTATION
     Route: 048

REACTIONS (2)
  - ALOPECIA [None]
  - INJECTION SITE PAIN [None]
